FAERS Safety Report 9729540 (Version 3)
Quarter: 2013Q4

REPORT INFORMATION
  Report Type: Spontaneous
  Country: AU (occurrence: AU)
  Receive Date: 20131204
  Receipt Date: 20131231
  Transmission Date: 20140711
  Serious: Yes (Hospitalization, Disabling)
  Sender: FDA-Public Use
  Company Number: AU-ASTRAZENECA-2011SE16831

PATIENT
  Age: 27456 Day
  Sex: Female

DRUGS (4)
  1. ARIMIDEX [Suspect]
     Route: 048
     Dates: start: 20110101, end: 20130201
  2. OXYCONTIN [Concomitant]
  3. ENDONE [Concomitant]
  4. PANADOL [Concomitant]

REACTIONS (8)
  - Sleep disorder [Not Recovered/Not Resolved]
  - Pain [Unknown]
  - Hot flush [Not Recovered/Not Resolved]
  - Osteoporosis [Not Recovered/Not Resolved]
  - Fatigue [Not Recovered/Not Resolved]
  - Blood cholesterol increased [Not Recovered/Not Resolved]
  - Spinal fracture [Unknown]
  - Night sweats [Not Recovered/Not Resolved]
